FAERS Safety Report 21872231 (Version 2)
Quarter: 2023Q1

REPORT INFORMATION
  Report Type: Report from Study
  Country: US (occurrence: US)
  Receive Date: 20230117
  Receipt Date: 20230315
  Transmission Date: 20230418
  Serious: Yes (Other)
  Sender: FDA-Public Use
  Company Number: US-GILEAD-2023-0612733

PATIENT
  Age: 56 Year
  Sex: Female

DRUGS (1)
  1. AMBRISENTAN [Suspect]
     Active Substance: AMBRISENTAN
     Indication: Pulmonary arterial hypertension
     Dosage: 10 MG, QD
     Route: 048
     Dates: start: 20220224, end: 20221228

REACTIONS (4)
  - Abnormal dreams [Unknown]
  - Swelling [Unknown]
  - Weight increased [Unknown]
  - Tinnitus [Unknown]

NARRATIVE: CASE EVENT DATE: 20221228
